FAERS Safety Report 19395493 (Version 1)
Quarter: 2021Q2

REPORT INFORMATION
  Report Type: Spontaneous
  Country: CN (occurrence: CN)
  Receive Date: 20210609
  Receipt Date: 20210609
  Transmission Date: 20210717
  Serious: Yes (Hospitalization)
  Sender: FDA-Public Use
  Company Number: CN-LUPIN PHARMACEUTICALS INC.-2021-08979

PATIENT
  Age: 36 Year
  Sex: Female

DRUGS (5)
  1. CINACALCET. [Suspect]
     Active Substance: CINACALCET
     Indication: HYPERCALCAEMIA
     Dosage: 50 MILLIGRAM, QD
     Route: 048
     Dates: start: 2019
  2. SALINE [Suspect]
     Active Substance: SODIUM CHLORIDE
     Indication: HYPERCALCAEMIA
     Dosage: UNK (4?5 L, INFUSION, EVERY DAY)
     Route: 042
     Dates: start: 2019
  3. ZOLEDRONIC ACID [Suspect]
     Active Substance: ZOLEDRONIC ACID
     Indication: HYPERCALCAEMIA
     Dosage: 4 MILLIGRAM (A TOTAL OF THREE DOSAGES WERE GIVEN IN ABOUT ONE AND A HALF MONTHS, 2 TIMES IN A WEEK,
     Route: 042
     Dates: start: 2019
  4. FUROSEMIDE. [Suspect]
     Active Substance: FUROSEMIDE
     Indication: HYPERCALCAEMIA
     Dosage: UNK (20?40MG, INJECTION)
     Route: 042
     Dates: start: 2019
  5. CALCITONIN SALMON. [Suspect]
     Active Substance: CALCITONIN SALMON
     Indication: HYPERCALCAEMIA
     Dosage: 200 INTERNATIONAL UNIT (INJECTION, 6 HOURS)
     Route: 030
     Dates: start: 2019

REACTIONS (3)
  - Nausea [Unknown]
  - Vomiting [Unknown]
  - Drug ineffective [Unknown]

NARRATIVE: CASE EVENT DATE: 2019
